FAERS Safety Report 11886493 (Version 1)
Quarter: 2016Q1

REPORT INFORMATION
  Report Type: Spontaneous
  Country: FR (occurrence: FR)
  Receive Date: 20160104
  Receipt Date: 20160104
  Transmission Date: 20160526
  Serious: Yes (Congenital Anomaly)
  Sender: FDA-Public Use
  Company Number: FR-SA-2015SA220135

PATIENT
  Sex: Male
  Weight: 2.04 kg

DRUGS (6)
  1. LANTUS [Suspect]
     Active Substance: INSULIN GLARGINE
     Route: 064
     Dates: end: 20150617
  2. LAMICTAL [Concomitant]
     Active Substance: LAMOTRIGINE
     Dates: start: 20150526
  3. VENTOLINE [Suspect]
     Active Substance: ALBUTEROL
     Dosage: FREQUENCY AND DAILY DOSE : OCCASIONALLY
     Route: 064
  4. EPITOMAX [Suspect]
     Active Substance: TOPIRAMATE
     Route: 064
     Dates: start: 20150526, end: 20150609
  5. EPITOMAX [Suspect]
     Active Substance: TOPIRAMATE
     Route: 064
  6. SERETIDE [Suspect]
     Active Substance: FLUTICASONE FUROATE\SALMETEROL XINAFOATE
     Route: 064

REACTIONS (3)
  - Renal aplasia [Not Recovered/Not Resolved]
  - Cleft lip [Not Recovered/Not Resolved]
  - Foetal exposure during pregnancy [Unknown]

NARRATIVE: CASE EVENT DATE: 20150820
